FAERS Safety Report 5887045-X (Version None)
Quarter: 2008Q3

REPORT INFORMATION
  Report Type: 
  Country: None (occurrence: None)
  Receive Date: 20080915
  Receipt Date: 20080910
  Transmission Date: 20090109
  Serious: Yes (Death, Other)
  Sender: FDA-Public Use
  Company Number: 2007SP017402

PATIENT
  Age: 58 Year
  Sex: Female
  Weight: 38 kg

DRUGS (14)
  1. TEMODAL [Suspect]
     Indication: ANAPLASTIC ASTROCYTOMA
     Dosage: 150 MG/M2; QD; PO
     Route: 048
     Dates: start: 20070528, end: 20070601
  2. TEMODAL [Suspect]
     Indication: RECURRENT CANCER
     Dosage: 150 MG/M2; QD; PO
     Route: 048
     Dates: start: 20070528, end: 20070601
  3. BETAMETHASONE [Concomitant]
  4. NUTRITIONAL SUPPLEMENT [Concomitant]
  5. SOLDEM  3A [Concomitant]
  6. UNASYN [Concomitant]
  7. GRAN [Concomitant]
  8. PANSPORIN [Concomitant]
  9. TIENAM [Concomitant]
  10. PREDOPA [Concomitant]
  11. NORADRENALIN [Concomitant]
  12. DEPAKENE [Concomitant]
  13. GASTER D [Concomitant]
  14. HUMULIN R [Concomitant]

REACTIONS (6)
  - ALTERED STATE OF CONSCIOUSNESS [None]
  - ANAPLASTIC ASTROCYTOMA [None]
  - GENERAL PHYSICAL HEALTH DETERIORATION [None]
  - HEPATIC FUNCTION ABNORMAL [None]
  - INFECTION [None]
  - MALIGNANT NEOPLASM PROGRESSION [None]
